FAERS Safety Report 15709489 (Version 1)
Quarter: 2018Q4

REPORT INFORMATION
  Report Type: Spontaneous
  Country: DK (occurrence: DK)
  Receive Date: 20181211
  Receipt Date: 20181211
  Transmission Date: 20190205
  Serious: Yes (Disabling)
  Sender: FDA-Public Use
  Company Number: DK-PFIZER INC-2018501109

PATIENT
  Age: 30 Year
  Sex: Female
  Weight: 70 kg

DRUGS (1)
  1. DOSTINEX [Suspect]
     Active Substance: CABERGOLINE
     Indication: LACTATION DISORDER
     Dosage: INITIALLY AT 1 MG. THEN 0.25 MG TWICE DAILY IN 2 DAYS. TOTAL 2 MG
     Route: 048
     Dates: start: 20181106, end: 20181114

REACTIONS (4)
  - Depressive symptom [Not Recovered/Not Resolved]
  - Perinatal depression [Not Recovered/Not Resolved]
  - Asthenia [Not Recovered/Not Resolved]
  - Muscle spasms [Not Recovered/Not Resolved]

NARRATIVE: CASE EVENT DATE: 20181110
